FAERS Safety Report 8619734 (Version 4)
Quarter: 2014Q1

REPORT INFORMATION
  Report Type: Spontaneous
  Country: US (occurrence: US)
  Receive Date: 20120618
  Receipt Date: 20140107
  Transmission Date: 20141002
  Serious: Yes (Hospitalization, Other)
  Sender: FDA-Public Use
  Company Number: US-ROCHE-788834

PATIENT
  Age: 37 Year
  Sex: Male
  Weight: 77.18 kg

DRUGS (5)
  1. ACCUTANE [Suspect]
     Indication: ACNE
     Route: 048
     Dates: start: 1991, end: 1992
  2. ACCUTANE [Suspect]
     Indication: ACNE CYSTIC
     Route: 065
     Dates: start: 1994, end: 1995
  3. ACCUTANE [Suspect]
     Route: 065
     Dates: start: 2000, end: 2001
  4. ACCUTANE [Suspect]
     Route: 065
     Dates: start: 20080222, end: 2009
  5. CLARITIN [Concomitant]

REACTIONS (10)
  - Colitis ulcerative [Unknown]
  - Intestinal obstruction [Unknown]
  - Inflammatory bowel disease [Unknown]
  - Emotional distress [Not Recovered/Not Resolved]
  - Eczema [Unknown]
  - Rectal abscess [Unknown]
  - Anal fistula [Unknown]
  - Myalgia [Unknown]
  - Sinusitis [Unknown]
  - Rash [Unknown]
